FAERS Safety Report 5296266-9 (Version None)
Quarter: 2007Q2

REPORT INFORMATION
  Report Type: 
  Country: None (occurrence: None)
  Receive Date: 20070413
  Receipt Date: 20070206
  Transmission Date: 20071010
  Serious: No
  Sender: FDA-Public Use
  Company Number: US-JNJFOC-20070202149

PATIENT
  Sex: Female
  Weight: 76.66 kg

DRUGS (6)
  1. DURAGESIC-100 [Suspect]
     Indication: PAIN
     Route: 062
  2. OPANA [Concomitant]
     Indication: BREAKTHROUGH PAIN
     Dosage: EVERY 9 TO 10 HOURS AS NEEDED
     Route: 048
  3. OXYCONTIN [Concomitant]
     Indication: BREAKTHROUGH PAIN
     Dosage: 40 MG X 2
     Route: 048
  4. OXYCODONE HCL [Concomitant]
     Indication: BREAKTHROUGH PAIN
     Dosage: 5 MG X 3
     Route: 048
  5. NORTRIPTYLINE HCL [Concomitant]
     Indication: ANTIDEPRESSANT THERAPY
     Route: 048
  6. UNKNOWN MEDICATION [Concomitant]
     Route: 065

REACTIONS (3)
  - APPLICATION SITE SCAR [None]
  - HERPES ZOSTER [None]
  - WRONG TECHNIQUE IN DRUG USAGE PROCESS [None]
